FAERS Safety Report 10024429 (Version 1)
Quarter: 2014Q1

REPORT INFORMATION
  Report Type: Spontaneous
  Country: US (occurrence: US)
  Receive Date: 20140320
  Receipt Date: 20140320
  Transmission Date: 20141002
  Serious: No
  Sender: FDA-Public Use
  Company Number: US-ENDO PHARMACEUTICALS INC.-OPCR20140065

PATIENT
  Age: 48 Year
  Sex: Male

DRUGS (3)
  1. OPANA ER 20MG [Suspect]
     Indication: PAIN
     Route: 048
     Dates: start: 20140203
  2. GABAPENTIN [Concomitant]
     Indication: PAIN
     Route: 048
  3. OXYCODONE/ACETAMINOPHEN 10MG/325MG [Concomitant]
     Indication: PAIN
     Dosage: 60/1950 MG
     Route: 048

REACTIONS (1)
  - Drug ineffective [Unknown]
